FAERS Safety Report 24765902 (Version 2)
Quarter: 2025Q1

REPORT INFORMATION
  Report Type: Spontaneous
  Country: US (occurrence: US)
  Receive Date: 20241223
  Receipt Date: 20250121
  Transmission Date: 20250408
  Serious: No
  Sender: ABBVIE
  Company Number: US-ABBVIE-6051890

PATIENT
  Age: 62 Year
  Sex: Male
  Weight: 84 kg

DRUGS (3)
  1. TRILIPIX [Suspect]
     Active Substance: FENOFIBRIC ACID
     Indication: Blood triglycerides increased
     Dosage: FORM STRENGTH: 135 MILLIGRAM
     Route: 048
     Dates: start: 2025
  2. TRILIPIX [Suspect]
     Active Substance: FENOFIBRIC ACID
     Indication: Blood triglycerides increased
     Dosage: FORM STRENGTH: 135 MILLIGRAM
     Route: 048
     Dates: start: 2020, end: 2024
  3. FENOFIBRIC ACID [Suspect]
     Active Substance: FENOFIBRIC ACID
     Indication: Blood triglycerides increased
     Dosage: FORM STRENGTH: 135 MILLIGRAM
     Route: 048
     Dates: start: 2024, end: 2024

REACTIONS (3)
  - Hypertension [Unknown]
  - Blood triglycerides increased [Not Recovered/Not Resolved]
  - Drug ineffective [Unknown]

NARRATIVE: CASE EVENT DATE: 20241101
